FAERS Safety Report 20186047 (Version 1)
Quarter: 2021Q4

REPORT INFORMATION
  Report Type: Spontaneous
  Country: ID (occurrence: None)
  Receive Date: 20211215
  Receipt Date: 20211215
  Transmission Date: 20220303
  Serious: Yes (Hospitalization)
  Sender: FDA-Public Use
  Company Number: 2021A866484

PATIENT
  Sex: Female

DRUGS (1)
  1. LYNPARZA [Suspect]
     Active Substance: OLAPARIB
     Route: 048
     Dates: start: 20211022

REACTIONS (4)
  - General physical health deterioration [Unknown]
  - Immobilisation syndrome [Unknown]
  - Dehydration [Unknown]
  - Hallucination [Unknown]
